FAERS Safety Report 6571246-1 (Version None)
Quarter: 2010Q1

REPORT INFORMATION
  Report Type: 
  Country: None (occurrence: None)
  Receive Date: 20100204
  Receipt Date: 20100125
  Transmission Date: 20100710
  Serious: Yes (Other)
  Sender: FDA-Public Use
  Company Number: DE-GENENTECH-277130

PATIENT
  Sex: Male
  Weight: 75 kg

DRUGS (3)
  1. RANIBIZUMAB [Suspect]
     Indication: MACULAR DEGENERATION
     Dosage: X1
     Route: 031
     Dates: start: 20081117
  2. RANIBIZUMAB [Suspect]
     Dosage: X1
     Route: 031
     Dates: start: 20081215, end: 20081218
  3. DUOTRAV [Concomitant]
     Indication: DRUG USE FOR UNKNOWN INDICATION

REACTIONS (1)
  - RETINAL HAEMORRHAGE [None]
